FAERS Safety Report 24988741 (Version 1)
Quarter: 2025Q1

REPORT INFORMATION
  Report Type: Report from Study
  Country: US (occurrence: US)
  Receive Date: 20250220
  Receipt Date: 20250220
  Transmission Date: 20250408
  Serious: Yes (Other)
  Sender: ACADIA PHARMACEUTICALS
  Company Number: US-ACADIA PHARMACEUTICALS INC.-ACA-2025-PIM-001743

PATIENT
  Sex: Male

DRUGS (9)
  1. NUPLAZID [Suspect]
     Active Substance: PIMAVANSERIN TARTRATE
     Indication: Parkinson^s disease psychosis
     Dosage: 34 MILLIGRAM, QD
     Route: 048
     Dates: start: 20240720
  2. CLONAZEPAM [Concomitant]
     Active Substance: CLONAZEPAM
  3. LIDOCAINE [Concomitant]
     Active Substance: LIDOCAINE
  4. BENZONATATE [Concomitant]
     Active Substance: BENZONATATE
  5. CEFDINIR [Concomitant]
     Active Substance: CEFDINIR
  6. DICLOFENAC [Concomitant]
     Active Substance: DICLOFENAC
  7. ATORVASTATIN [Concomitant]
     Active Substance: ATORVASTATIN
  8. CARBIDOPA\LEVODOPA [Concomitant]
     Active Substance: CARBIDOPA\LEVODOPA
  9. CLOBETASOL PROPIONATE [Concomitant]
     Active Substance: CLOBETASOL PROPIONATE

REACTIONS (3)
  - Parkinson^s disease [Not Recovered/Not Resolved]
  - Adverse event [Not Recovered/Not Resolved]
  - Fall [Not Recovered/Not Resolved]
